FAERS Safety Report 6816558-9 (Version None)
Quarter: 2010Q3

REPORT INFORMATION
  Report Type: 
  Country: None (occurrence: None)
  Receive Date: 20100706
  Receipt Date: 20100624
  Transmission Date: 20110219
  Serious: Yes (Other)
  Sender: FDA-Public Use
  Company Number: PHHY2010JP42149

PATIENT
  Age: 15 Year
  Sex: Male

DRUGS (2)
  1. NEORAL [Suspect]
     Indication: NEPHROTIC SYNDROME
     Dosage: UNK
     Route: 048
     Dates: start: 20100612, end: 20100622
  2. PREDONINE [Concomitant]
     Dosage: UNK
     Route: 048
     Dates: start: 20100512

REACTIONS (1)
  - DUODENAL ULCER PERFORATION [None]
